FAERS Safety Report 10513990 (Version 3)
Quarter: 2016Q1

REPORT INFORMATION
  Report Type: Report from Study
  Country: BR (occurrence: BR)
  Receive Date: 20141013
  Receipt Date: 20160321
  Transmission Date: 20160525
  Serious: Yes (Other)
  Sender: FDA-Public Use
  Company Number: BR-ABBVIE-11P-020-0877515-00

PATIENT
  Age: 50 Year
  Sex: Female
  Weight: 71 kg

DRUGS (12)
  1. PREDNISONE. [Concomitant]
     Active Substance: PREDNISONE
     Indication: PAIN
     Dosage: 2 TABLETS PER DAY
     Route: 048
     Dates: start: 2006
  2. ARAVA [Concomitant]
     Active Substance: LEFLUNOMIDE
     Indication: RHEUMATOID ARTHRITIS
     Route: 048
     Dates: start: 2012
  3. HUMIRA [Suspect]
     Active Substance: ADALIMUMAB
     Route: 058
  4. PREDNISONE. [Concomitant]
     Active Substance: PREDNISONE
     Indication: RHEUMATOID ARTHRITIS
  5. NIMESULIDE [Suspect]
     Active Substance: NIMESULIDE
     Indication: PRODUCT USED FOR UNKNOWN INDICATION
     Route: 065
  6. METHOTREXATE [Suspect]
     Active Substance: METHOTREXATE
     Indication: RHEUMATOID ARTHRITIS
     Route: 048
     Dates: start: 2011
  7. HYDROXYCHLOROQUINE [Concomitant]
     Active Substance: HYDROXYCHLOROQUINE
     Indication: RHEUMATOID ARTHRITIS
     Route: 048
     Dates: start: 2013
  8. DOLAMIN [Concomitant]
     Indication: PAIN
     Dates: start: 201304
  9. HUMIRA [Suspect]
     Active Substance: ADALIMUMAB
     Indication: RHEUMATOID ARTHRITIS
     Route: 058
     Dates: start: 20090102, end: 201408
  10. HYDROCHLOROTHIAZIDE. [Concomitant]
     Active Substance: HYDROCHLOROTHIAZIDE
     Indication: HYPERTENSION
     Dosage: 2 TABLETS PER DAY
     Route: 048
  11. DOLAMIN [Concomitant]
     Indication: ANTIINFLAMMATORY THERAPY
  12. OMEPRAZOLE. [Concomitant]
     Active Substance: OMEPRAZOLE
     Indication: GASTRIC DISORDER
     Route: 048
     Dates: start: 2003

REACTIONS (16)
  - Joint crepitation [Not Recovered/Not Resolved]
  - Drug ineffective [Unknown]
  - Influenza [Recovered/Resolved]
  - Eating disorder [Unknown]
  - Joint stiffness [Recovered/Resolved]
  - Gait disturbance [Not Recovered/Not Resolved]
  - Unevaluable event [Unknown]
  - Joint stiffness [Recovered/Resolved]
  - Renal impairment [Unknown]
  - Atrophy [Recovered/Resolved]
  - Arthropathy [Unknown]
  - Nausea [Unknown]
  - Atrophy [Recovered/Resolved]
  - Malaise [Unknown]
  - Arthralgia [Not Recovered/Not Resolved]
  - Joint swelling [Not Recovered/Not Resolved]

NARRATIVE: CASE EVENT DATE: 201108
